FAERS Safety Report 5013634-0 (Version None)
Quarter: 2006Q2

REPORT INFORMATION
  Report Type: 
  Country: None (occurrence: None)
  Receive Date: 20060530
  Receipt Date: 20060508
  Transmission Date: 20061013
  Serious: Yes (Other)
  Sender: FDA-Public Use
  Company Number: NL-GLAXOSMITHKLINE-B0423721A

PATIENT
  Sex: Male
  Weight: 3.7 kg

DRUGS (1)
  1. RANITIDINE HYDROCHLORIDE [Suspect]
     Indication: DYSPEPSIA
     Route: 048
     Dates: start: 20060426, end: 20060506

REACTIONS (9)
  - ACCIDENTAL OVERDOSE [None]
  - APATHY [None]
  - CRYING [None]
  - DIARRHOEA [None]
  - DRUG DISPENSING ERROR [None]
  - EYELID DISORDER [None]
  - HYPOTONIA [None]
  - LOSS OF CONSCIOUSNESS [None]
  - OVERDOSE [None]
